FAERS Safety Report 6045004-0 (Version None)
Quarter: 2009Q1

REPORT INFORMATION
  Report Type: 
  Country: None (occurrence: None)
  Receive Date: 20090116
  Receipt Date: 20090116
  Transmission Date: 20090719
  Serious: No
  Sender: FDA-Public Use
  Company Number: None

PATIENT
  Age: 23 Year
  Sex: Male
  Weight: 89.3586 kg

DRUGS (1)
  1. NAPROSYN [Suspect]
     Indication: BACK PAIN
     Dosage: 500 MG ONCE PO BID
     Route: 048

REACTIONS (4)
  - BURNING SENSATION [None]
  - EYE IRRITATION [None]
  - EYE PRURITUS [None]
  - PRURITUS [None]
